FAERS Safety Report 16833201 (Version 1)
Quarter: 2019Q3

REPORT INFORMATION
  Report Type: Spontaneous
  Country: CA (occurrence: CA)
  Receive Date: 20190920
  Receipt Date: 20190920
  Transmission Date: 20191005
  Serious: Yes (Hospitalization)
  Sender: FDA-Public Use
  Company Number: PHHY2019CA215186

PATIENT
  Age: 7 Year
  Sex: Male

DRUGS (1)
  1. DEXAMETHASONE. [Suspect]
     Active Substance: DEXAMETHASONE
     Indication: BRAIN ABSCESS
     Dosage: UNK
     Route: 065

REACTIONS (4)
  - Eosinophilia [Recovered/Resolved]
  - Purpura [Recovered/Resolved]
  - Escherichia bacteraemia [Recovered/Resolved]
  - Strongyloidiasis [Recovered/Resolved]
